FAERS Safety Report 8179519-6 (Version None)
Quarter: 2012Q1

REPORT INFORMATION
  Report Type: 
  Country: None (occurrence: None)
  Receive Date: 20120302
  Receipt Date: 20120221
  Transmission Date: 20120608
  Serious: Yes (Hospitalization)
  Sender: FDA-Public Use
  Company Number: US-JNJFOC-20111208189

PATIENT
  Sex: Female
  Weight: 49.9 kg

DRUGS (11)
  1. FENTANYL [Concomitant]
     Route: 062
  2. FOLIC ACID [Concomitant]
  3. SIMPONI [Suspect]
     Route: 058
     Dates: start: 20080101, end: 20110801
  4. PREDNISONE TAB [Concomitant]
  5. LEUCOVORIN CALCIUM [Concomitant]
  6. RECLAST [Concomitant]
     Dates: start: 20111101
  7. SIMPONI [Suspect]
     Indication: RHEUMATOID ARTHRITIS
     Route: 058
     Dates: start: 20111101
  8. METHOTREXATE [Concomitant]
     Indication: RHEUMATOID ARTHRITIS
  9. HYDROCODONE BITARTRATE [Concomitant]
     Dosage: 10/325
  10. RESTASIS [Concomitant]
  11. ZOLPIDEM [Concomitant]

REACTIONS (3)
  - DRUG INEFFECTIVE [None]
  - RHEUMATOID ARTHRITIS [None]
  - URINARY TRACT INFECTION [None]
